FAERS Safety Report 14831302 (Version 3)
Quarter: 2019Q1

REPORT INFORMATION
  Report Type: Spontaneous
  Country: US (occurrence: US)
  Receive Date: 20180501
  Receipt Date: 20190329
  Transmission Date: 20190417
  Serious: Yes (Death, Other)
  Sender: FDA-Public Use
  Company Number: US-ASTRAZENECA-2018SE48574

PATIENT
  Age: 18803 Day
  Sex: Male

DRUGS (18)
  1. NEXIUM [Suspect]
     Active Substance: ESOMEPRAZOLE MAGNESIUM
     Route: 048
     Dates: start: 198909, end: 201707
  2. FENOFIBRATE. [Concomitant]
     Active Substance: FENOFIBRATE
  3. DEXILANT [Suspect]
     Active Substance: DEXLANSOPRAZOLE
     Route: 065
     Dates: start: 198909, end: 201707
  4. RENVELA [Concomitant]
     Active Substance: SEVELAMER CARBONATE
  5. METOPROLOL. [Concomitant]
     Active Substance: METOPROLOL
  6. ACETAMINOPHEN. [Concomitant]
     Active Substance: ACETAMINOPHEN
  7. PREVACID 24 HR [Suspect]
     Active Substance: LANSOPRAZOLE
     Route: 065
     Dates: start: 198909, end: 201707
  8. PERPHENAZINE. [Concomitant]
     Active Substance: PERPHENAZINE
  9. ATORVASTATIN [Concomitant]
     Active Substance: ATORVASTATIN
  10. NEXIUM 24HR [Suspect]
     Active Substance: ESOMEPRAZOLE MAGNESIUM
     Route: 048
     Dates: start: 198909, end: 201707
  11. PRILOSEC OTC [Suspect]
     Active Substance: OMEPRAZOLE MAGNESIUM
     Route: 048
     Dates: start: 198909, end: 201707
  12. PROTONIX [Suspect]
     Active Substance: PANTOPRAZOLE SODIUM
     Route: 065
     Dates: start: 198909, end: 201707
  13. AMITRIPTYLINE [Concomitant]
     Active Substance: AMITRIPTYLINE
  14. GENTAMICIN. [Concomitant]
     Active Substance: GENTAMICIN
  15. PRILOSEC [Suspect]
     Active Substance: OMEPRAZOLE MAGNESIUM
     Route: 048
     Dates: start: 198909, end: 201707
  16. PREVACID [Suspect]
     Active Substance: LANSOPRAZOLE
     Route: 065
     Dates: start: 198909, end: 201707
  17. RANITIDINE. [Concomitant]
     Active Substance: RANITIDINE
  18. VANCOMYCIN [Concomitant]
     Active Substance: VANCOMYCIN

REACTIONS (5)
  - Chronic kidney disease [Unknown]
  - Death [Fatal]
  - End stage renal disease [Unknown]
  - Acute kidney injury [Unknown]
  - Renal injury [Unknown]

NARRATIVE: CASE EVENT DATE: 20111208
